FAERS Safety Report 5958825-7 (Version None)
Quarter: 2008Q4

REPORT INFORMATION
  Report Type: 
  Country: None (occurrence: None)
  Receive Date: 20081117
  Receipt Date: 20081104
  Transmission Date: 20090506
  Serious: Yes (Hospitalization)
  Sender: FDA-Public Use
  Company Number: 2008-03966

PATIENT
  Age: 66 Year
  Sex: Female
  Weight: 97 kg

DRUGS (2)
  1. VELCADE [Suspect]
     Indication: GLIOBLASTOMA MULTIFORME
     Dosage: 1.3 MG/M2, UNK, IV BOLUS
     Route: 042
     Dates: start: 20080829, end: 20081013
  2. VORINOSTAT(SUBEROYLANILIDE HYDROXAMIC ACID) ORAL DRUG UNSPECIFIED FORM [Suspect]
     Indication: GLIOBLASTOMA MULTIFORME
     Dosage: 400 MG, UNK, ORAL
     Route: 048
     Dates: start: 20080829, end: 20081016

REACTIONS (18)
  - ANAEMIA [None]
  - BLOOD PRESSURE DIASTOLIC DECREASED [None]
  - CONFUSIONAL STATE [None]
  - CONTUSION [None]
  - CRANIAL NERVE DISORDER [None]
  - DEHYDRATION [None]
  - DIABETES MELLITUS [None]
  - DYSSTASIA [None]
  - FACIAL PALSY [None]
  - FALL [None]
  - LYMPHOPENIA [None]
  - MEMORY IMPAIRMENT [None]
  - MUSCULAR WEAKNESS [None]
  - PERIPHERAL MOTOR NEUROPATHY [None]
  - PLATELET COUNT DECREASED [None]
  - SUBARACHNOID HAEMORRHAGE [None]
  - URINARY TRACT INFECTION [None]
  - VITAMIN B12 DEFICIENCY [None]
